FAERS Safety Report 4773942-5 (Version None)
Quarter: 2005Q3

REPORT INFORMATION
  Report Type: 
  Country: None (occurrence: None)
  Receive Date: 20050919
  Receipt Date: 20050908
  Transmission Date: 20060218
  Serious: Yes (Other)
  Sender: FDA-Public Use
  Company Number: 430077K05USA

PATIENT
  Age: 44 Year
  Sex: Female

DRUGS (2)
  1. NOVANTRONE [Suspect]
     Indication: MULTIPLE SCLEROSIS
     Dosage: 1 IN 3 MONTHS
     Dates: start: 20040501
  2. AVONEX [Concomitant]

REACTIONS (1)
  - CARDIAC DISORDER [None]
